FAERS Safety Report 15188162 (Version 2)
Quarter: 2018Q4

REPORT INFORMATION
  Report Type: Spontaneous
  Country: US (occurrence: US)
  Receive Date: 20180724
  Receipt Date: 20181126
  Transmission Date: 20190204
  Serious: No
  Sender: FDA-Public Use
  Company Number: US-BAUSCH-BL-2018-009258

PATIENT
  Sex: Male

DRUGS (1)
  1. JUBLIA [Suspect]
     Active Substance: EFINACONAZOLE
     Indication: PRODUCT USED FOR UNKNOWN INDICATION
     Route: 065

REACTIONS (2)
  - Drug ineffective [Unknown]
  - Fungal infection [Not Recovered/Not Resolved]
